FAERS Safety Report 5862164-2 (Version None)
Quarter: 2008Q3

REPORT INFORMATION
  Report Type: 
  Country: None (occurrence: None)
  Receive Date: 20080828
  Receipt Date: 20080603
  Transmission Date: 20090109
  Serious: No
  Sender: FDA-Public Use
  Company Number: A0730912A

PATIENT
  Age: 41 Year
  Sex: Male

DRUGS (2)
  1. ZOVIRAX [Suspect]
     Indication: HERPES ZOSTER
     Dosage: 800MG FIVE TIMES PER DAY
     Route: 048
     Dates: start: 20080425, end: 20080518
  2. LYRICA [Concomitant]

REACTIONS (1)
  - ALOPECIA [None]
